FAERS Safety Report 19352015 (Version 1)
Quarter: 2021Q2

REPORT INFORMATION
  Report Type: Report from Study
  Country: JP (occurrence: JP)
  Receive Date: 20210531
  Receipt Date: 20210531
  Transmission Date: 20210717
  Serious: Yes (Hospitalization, Other)
  Sender: FDA-Public Use
  Company Number: JP-PFIZER INC-2021606293

PATIENT
  Age: 58 Year
  Sex: Male
  Weight: 60 kg

DRUGS (21)
  1. LOXOPROFEN NA [Concomitant]
     Active Substance: LOXOPROFEN SODIUM
     Dosage: UNK, 1X/DAY (DOSE UNSPECIFIED(SHOULDER, WAIST))
     Route: 062
  2. TAKECAB [Concomitant]
     Active Substance: VONOPRAZAN FUMARATE
     Dosage: 10 MG, 1X/DAY (AFTER BREAKFAST)
     Route: 048
  3. BRAFTOVI [Suspect]
     Active Substance: ENCORAFENIB
     Indication: MALIGNANT MELANOMA
     Dosage: 450 MG
     Route: 048
     Dates: start: 20200302, end: 20210428
  4. YERVOY [Suspect]
     Active Substance: IPILIMUMAB
     Indication: MALIGNANT MELANOMA
     Dosage: 190MG ,190MG/DAY (2017/12/13,2018/1/5)
     Route: 041
     Dates: start: 20171213, end: 20180105
  5. SOLMIRAN [Concomitant]
     Dosage: 900 MG, 3X/DAY (JUST AFTER EVERY MEAL)
     Route: 048
  6. FLUVASTATIN [Concomitant]
     Active Substance: FLUVASTATIN SODIUM
     Dosage: 20 MG, 1X/DAY (AFTER DINNER)
     Route: 048
  7. ELIETEN [METOCLOPRAMIDE] [Concomitant]
     Dosage: 5 MG, 3X/DAY (AFTER EVERY MEAL)
     Route: 048
  8. OPDIVO [Suspect]
     Active Substance: NIVOLUMAB
     Dosage: 57 MG/KG
     Dates: start: 20200207
  9. NICORANDIL [Concomitant]
     Active Substance: NICORANDIL
     Dosage: 5 MG, 3X/DAY (AFTER EVERY MEAL)
     Route: 048
  10. MIYA?BM [Concomitant]
     Active Substance: CLOSTRIDIUM BUTYRICUM SPORES STRAIN M-55
     Dosage: 1 DF, 3X/DAY (AFTER EVERY MEAL)
     Route: 048
  11. OPDIVO [Suspect]
     Active Substance: NIVOLUMAB
     Indication: MALIGNANT MELANOMA
     Dosage: 3 MG/KG, Q2W
     Route: 041
     Dates: start: 20170410, end: 20180105
  12. URSODEOXYCHOLIC ACID [Concomitant]
     Active Substance: URSODIOL
     Dosage: 200 MG, 3X/DAY (AFTER EVERY MEAL)
     Route: 048
  13. MEKTOVI [Suspect]
     Active Substance: BINIMETINIB
     Indication: MALIGNANT MELANOMA
     Dosage: 45 MG
     Route: 048
  14. MEKTOVI [Suspect]
     Active Substance: BINIMETINIB
     Dosage: 90 MG
     Route: 048
     Dates: start: 20200302, end: 20210428
  15. NITROPEN [Concomitant]
     Active Substance: NITROGLYCERIN
     Dosage: 1DF/1 TIME, (PRN) AT CHEST PAIN
     Route: 048
  16. NIFEDIPINE CR [Concomitant]
     Active Substance: NIFEDIPINE
     Dosage: 20 MG, 1X/DAY (AFTER DINNER)
     Route: 048
  17. NEXIUM [Concomitant]
     Active Substance: ESOMEPRAZOLE MAGNESIUM
     Dosage: 20 MG, 1X/DAY (AFTER DINNER)
     Route: 048
  18. ISOSORBIDE MONONITRATE. [Concomitant]
     Active Substance: ISOSORBIDE MONONITRATE
     Dosage: 40 MG, 2X/DAY (AT GETTING UP,AT GOING TO BED)
     Route: 048
  19. BENIDIPINE HYDROCHLORIDE [Concomitant]
     Active Substance: BENIDIPINE HYDROCHLORIDE
     Dosage: 8 MG, 1X/DAY
     Route: 048
  20. MILLIS [Concomitant]
     Dosage: 10 MG, 1X/DAY
     Route: 062
  21. LOBU [Concomitant]
     Active Substance: LOBUCAVIR
     Dosage: 60 MG, 3X/DAY (AFTER EVERY MEAL)
     Route: 048

REACTIONS (5)
  - Pain [Unknown]
  - Organising pneumonia [Recovering/Resolving]
  - Hypothyroidism [Recovering/Resolving]
  - Skin tightness [Unknown]
  - Serous retinal detachment [Recovered/Resolved]

NARRATIVE: CASE EVENT DATE: 20180117
